FAERS Safety Report 21794361 (Version 1)
Quarter: 2022Q4

REPORT INFORMATION
  Report Type: Other
  Country: US (occurrence: None)
  Receive Date: 20221229
  Receipt Date: 20221229
  Transmission Date: 20230113
  Serious: Yes (Death)
  Sender: FDA-Public Use
  Company Number: US-ROCHE-3252578

PATIENT
  Age: 55 Year
  Sex: Male

DRUGS (12)
  1. GAVRETO [Suspect]
     Active Substance: PRALSETINIB
     Indication: Thyroid cancer
     Dosage: TAKE 4 CAPSULE(S) BY MOUTH EVERY DAY
     Route: 048
     Dates: start: 20211109
  2. GAVRETO [Suspect]
     Active Substance: PRALSETINIB
     Indication: Metastases to liver
  3. GAVRETO [Suspect]
     Active Substance: PRALSETINIB
     Indication: Cholangiocarcinoma
  4. FUROSEMIDE [Concomitant]
     Active Substance: FUROSEMIDE
     Route: 048
     Dates: start: 20211110
  5. FUROSEMIDE [Concomitant]
     Active Substance: FUROSEMIDE
     Route: 048
  6. METOLAZONE [Concomitant]
     Active Substance: METOLAZONE
     Route: 048
     Dates: start: 20211110
  7. NARCO [Concomitant]
     Dosage: 10-325 MG, TAKE AS DIRECTED
     Route: 048
     Dates: start: 20211026
  8. CARVEDILOL [Concomitant]
     Active Substance: CARVEDILOL
     Route: 048
  9. GABAPENTIN [Concomitant]
     Active Substance: GABAPENTIN
     Route: 048
  10. LEVOTHYROXINE SODIUM [Concomitant]
     Active Substance: LEVOTHYROXINE SODIUM
     Dosage: 150 MCG
     Route: 048
  11. SPIRONOLACTONE [Concomitant]
     Active Substance: SPIRONOLACTONE
     Route: 048
  12. ALDACTONE [Concomitant]
     Active Substance: SPIRONOLACTONE
     Route: 048
     Dates: end: 20210930

REACTIONS (1)
  - Death [Fatal]

NARRATIVE: CASE EVENT DATE: 20221222
